FAERS Safety Report 5024988-3 (Version None)
Quarter: 2006Q2

REPORT INFORMATION
  Report Type: 
  Country: None (occurrence: None)
  Receive Date: 20060426
  Receipt Date: 20060105
  Transmission Date: 20061013
  Serious: Yes (Other)
  Sender: FDA-Public Use
  Company Number: 2006004577

PATIENT
  Age: 64 Year
  Sex: Female
  Weight: 108.8633 kg

DRUGS (13)
  1. LYRICA [Suspect]
     Indication: PAIN IN EXTREMITY
     Dosage: 150 MG (75 MG, 2 IN 1 D), ORAL
     Route: 048
     Dates: start: 20051227
  2. LOPRESSOR [Concomitant]
  3. POTASSIUM [Concomitant]
  4. ACETYLSALICYLIC ACID SRT [Concomitant]
  5. SENOKOT [Concomitant]
  6. AVAPRO [Concomitant]
  7. TRAZODONE HCL [Concomitant]
  8. FOLTX (CYANOCOBALAMIN, FOLIC ACID, PYRIDOXINE) [Concomitant]
  9. ACTOS [Concomitant]
  10. LIPITOR [Concomitant]
  11. LASIX [Concomitant]
  12. DARVOCET [Concomitant]
  13. GLUCOSAMINE [Concomitant]

REACTIONS (1)
  - FAECES DISCOLOURED [None]
